FAERS Safety Report 6402653-5 (Version None)
Quarter: 2009Q4

REPORT INFORMATION
  Report Type: 
  Country: None (occurrence: None)
  Receive Date: 20091009
  Receipt Date: 20090930
  Transmission Date: 20100525
  Serious: Yes (Life-Threatening, Hospitalization)
  Sender: FDA-Public Use
  Company Number: ADR34352009

PATIENT
  Age: 95 Year
  Sex: Female

DRUGS (8)
  1. CIPROFLOXACIN HYDROCHLORIDE [Suspect]
     Dosage: 500 MG
     Dates: start: 20080611, end: 20080615
  2. PIPERACILLIN AND TAZOBACTAM [Concomitant]
  3. BUMETANIDE [Concomitant]
  4. CHLORPHENIRAMINE MALEATE [Concomitant]
  5. IRON [Concomitant]
  6. GLICAZIDE [Concomitant]
  7. OMEPRAZOLE [Concomitant]
  8. QUININE [Concomitant]

REACTIONS (4)
  - BLOOD ALKALINE PHOSPHATASE INCREASED [None]
  - CELLULITIS [None]
  - CLOSTRIDIUM DIFFICILE COLITIS [None]
  - GAMMA-GLUTAMYLTRANSFERASE INCREASED [None]
